FAERS Safety Report 10876404 (Version 1)
Quarter: 2015Q1

REPORT INFORMATION
  Report Type: Spontaneous
  Country: US (occurrence: US)
  Receive Date: 20150228
  Receipt Date: 20150228
  Transmission Date: 20150721
  Serious: Yes (Other)
  Sender: FDA-Public Use
  Company Number: PHEH2015US003628

PATIENT
  Sex: Female
  Weight: 85.71 kg

DRUGS (77)
  1. LYRICA [Concomitant]
     Active Substance: PREGABALIN
     Indication: ARTHROPATHY
     Dosage: 1 DF, QD (50 MG)
     Route: 048
  2. LYRICA [Concomitant]
     Active Substance: PREGABALIN
     Dosage: 1 DF, QHS (150 MG) FOR 90 DAYS
     Route: 048
  3. LYRICA [Concomitant]
     Active Substance: PREGABALIN
     Dosage: 1 DF, QHS (100 MG) FOR 30 DAYS
     Route: 048
  4. LYRICA [Concomitant]
     Active Substance: PREGABALIN
     Dosage: 1 DF, QHS (100 MG) FOR 30 DAYS
     Route: 048
  5. LYRICA [Concomitant]
     Active Substance: PREGABALIN
     Dosage: 1 DF, QHS (50 MG) FOR 30 DAYS
     Route: 048
  6. LYRICA [Concomitant]
     Active Substance: PREGABALIN
     Dosage: 1 DF, QHS (75 MG) FOR 30 DAYS
     Route: 048
  7. PREDNISONE. [Concomitant]
     Active Substance: PREDNISONE
     Dosage: 2.5 MG, QD (30 DAYS, 1 TABLET)
     Route: 048
  8. AVARA [Concomitant]
     Dosage: 1 DF, QD (10 MG, 90 DAYS)
     Route: 048
  9. AVARA [Concomitant]
     Dosage: 1 DF, QD (10 MG, 30 DAYS)
     Route: 048
  10. AVARA [Concomitant]
     Dosage: 1 DF, QD (10 MG, 30 DAYS)
     Route: 048
  11. AVARA [Concomitant]
     Dosage: 1 DF, QD (10 MG, 30 DAYS)
     Route: 048
  12. ULTRAM [Concomitant]
     Active Substance: TRAMADOL HYDROCHLORIDE
     Dosage: 1 DF, TID (PRN, 30 DAYS, 2 REFILLS)
     Route: 048
     Dates: start: 20141222
  13. LYRICA [Concomitant]
     Active Substance: PREGABALIN
     Dosage: 1 DF, QHS (100 MG) FOR 90 DAYS
     Route: 048
  14. ASPIRIN. [Concomitant]
     Active Substance: ASPIRIN
     Indication: PRODUCT USED FOR UNKNOWN INDICATION
     Dosage: 1 DF, QD
     Route: 048
  15. AVARA [Concomitant]
     Dosage: 1 DF, QD (20 MG, 30 DAYS)
     Route: 048
  16. ULTRAM [Concomitant]
     Active Substance: TRAMADOL HYDROCHLORIDE
     Indication: PRODUCT USED FOR UNKNOWN INDICATION
     Dosage: 1 DF, TID (PRN, 30 DAYS)
     Route: 048
  17. RECLAST [Suspect]
     Active Substance: ZOLEDRONIC ACID
     Indication: PRODUCT USED FOR UNKNOWN INDICATION
     Route: 042
  18. LYRICA [Concomitant]
     Active Substance: PREGABALIN
     Dosage: 1 DF, QHS (50 MG) FOR 30 DAYS
     Route: 048
  19. PREDNISONE. [Concomitant]
     Active Substance: PREDNISONE
     Dosage: 2.5 MG, QD (30 DAYS, 1 TABLET)
     Route: 048
  20. PREDNISONE. [Concomitant]
     Active Substance: PREDNISONE
     Dosage: 2.5 MG, QD (30 DAYS, 1 TABLET)
     Route: 048
  21. PREDNISONE. [Concomitant]
     Active Substance: PREDNISONE
     Dosage: 2.5 MG, QD (30 DAYS, 6 REFILLS)
     Route: 048
     Dates: start: 20140920
  22. WARFARIN [Concomitant]
     Active Substance: WARFARIN
     Indication: PRODUCT USED FOR UNKNOWN INDICATION
     Dosage: 1 DF, QD
     Route: 048
  23. AVARA [Concomitant]
     Dosage: 1 DF, QD (10 MG, 90 DAYS)
     Route: 048
  24. AVARA [Concomitant]
     Dosage: 1 DF, QD (10 MG, 90 DAYS)
     Route: 048
  25. ULTRAM [Concomitant]
     Active Substance: TRAMADOL HYDROCHLORIDE
     Dosage: 1 DF, TID (PRN, 30 DAYS)
     Route: 048
  26. LYRICA [Concomitant]
     Active Substance: PREGABALIN
     Dosage: 1 DF, QHS (50 MG) FOR 90 DAYS
     Route: 048
  27. LYRICA [Concomitant]
     Active Substance: PREGABALIN
     Dosage: 1 DF, QHS (50 MG) FOR 14 DAYS
     Route: 048
  28. METOPROLOL TARTRATE. [Concomitant]
     Active Substance: METOPROLOL TARTRATE
     Indication: PRODUCT USED FOR UNKNOWN INDICATION
     Dosage: 0.5 DF, BID
     Route: 048
  29. PREDNISONE. [Concomitant]
     Active Substance: PREDNISONE
     Dosage: 2.5 MG, QD (30 DAYS, 1 TABLET)
     Route: 048
  30. PREDNISONE. [Concomitant]
     Active Substance: PREDNISONE
     Dosage: 2.5 MG, QD (30 DAYS, 1 TABLET)
     Route: 048
  31. PREDNISONE. [Concomitant]
     Active Substance: PREDNISONE
     Dosage: 2.5 MG, QD (30 DAYS, 1 TABLET)
     Route: 048
  32. AVARA [Concomitant]
     Dosage: 1 DF, QD (10 MG, 90 DAYS)
     Route: 048
  33. AVARA [Concomitant]
     Dosage: 1 DF, QD (10 MG, 90 DAYS)
     Route: 048
  34. ULTRAM [Concomitant]
     Active Substance: TRAMADOL HYDROCHLORIDE
     Dosage: 1 DF, TID (PRN, 90 DAYS)
     Route: 048
  35. LYRICA [Concomitant]
     Active Substance: PREGABALIN
     Dosage: 1 DF, QHS (100 MG) FOR 90 DAYS
     Route: 048
  36. LYRICA [Concomitant]
     Active Substance: PREGABALIN
     Dosage: 1 DF, QHS (150 MG) FOR 90 DAYS
     Route: 048
  37. LYRICA [Concomitant]
     Active Substance: PREGABALIN
     Dosage: 1 DF, QHS (150 MG) FOR 90 DAYS
     Route: 048
  38. LYRICA [Concomitant]
     Active Substance: PREGABALIN
     Dosage: 1-2 DF, QHS (50 MG) FOR 14 DAYS
     Route: 048
  39. PREDNISONE. [Concomitant]
     Active Substance: PREDNISONE
     Dosage: 2.5 MG, QD (30 DAYS, 1 TABLET)
     Route: 048
  40. PREDNISONE. [Concomitant]
     Active Substance: PREDNISONE
     Dosage: 2.5 MG, QD (30 DAYS, 1 TABLET)
     Route: 048
  41. AVARA [Concomitant]
     Indication: PRODUCT USED FOR UNKNOWN INDICATION
     Dosage: 1 DF, QD (30 DAYS)
     Route: 048
  42. AVARA [Concomitant]
     Dosage: 1 DF, QD (10 MG, 30 DAYS)
     Route: 048
  43. AVARA [Concomitant]
     Dosage: 1 DF, QD (10 MG, 30 DAYS)
     Route: 048
  44. ULTRAM [Concomitant]
     Active Substance: TRAMADOL HYDROCHLORIDE
     Dosage: 1 DF, TID (PRN, 90 DAYS)
     Route: 048
  45. ULTRAM [Concomitant]
     Active Substance: TRAMADOL HYDROCHLORIDE
     Dosage: 1 DF, TID (PRN, 30 DAYS)
     Route: 048
  46. ULTRAM [Concomitant]
     Active Substance: TRAMADOL HYDROCHLORIDE
     Dosage: 1 DF, TID (PRN, 30 DAYS)
     Route: 048
  47. LYRICA [Concomitant]
     Active Substance: PREGABALIN
     Dosage: 1 DF, QHS (150 MG) FOR 14 DAYS
     Route: 048
  48. LYRICA [Concomitant]
     Active Substance: PREGABALIN
     Dosage: 1 DF, QHS (150 MG) FOR 14 DAYS
     Route: 048
  49. PREDNISONE. [Concomitant]
     Active Substance: PREDNISONE
     Dosage: 20 MG, QD (FOR 3 WEEKS)
     Route: 048
     Dates: start: 201107
  50. PREDNISONE. [Concomitant]
     Active Substance: PREDNISONE
     Dosage: 10 MG, QD (1 TABLET)
     Route: 048
  51. PREDNISONE. [Concomitant]
     Active Substance: PREDNISONE
     Dosage: 2.5 MG, QD (30 DAYS, 1 TABLET)
     Route: 048
  52. PREDNISONE. [Concomitant]
     Active Substance: PREDNISONE
     Dosage: 2.5 MG, QD (30 DAYS, 1 TABLET)
     Route: 048
  53. PREDNISONE. [Concomitant]
     Active Substance: PREDNISONE
     Dosage: 2.5 MG, QD (30 DAYS, 1 TABLET)
     Route: 048
  54. AVARA [Concomitant]
     Dosage: 1 DF, QD (10 MG, 30 DAYS)
     Route: 048
  55. ALENDRONATE [Concomitant]
     Active Substance: ALENDRONATE SODIUM
     Indication: PRODUCT USED FOR UNKNOWN INDICATION
     Dosage: 1 DF, QW
     Route: 048
  56. LYRICA [Concomitant]
     Active Substance: PREGABALIN
     Dosage: 1 DF, QD (100 MG)
     Route: 048
  57. LYRICA [Concomitant]
     Active Substance: PREGABALIN
     Dosage: 1 DF, QHS (150 MG) FOR 14 DAYS
     Route: 048
  58. LYRICA [Concomitant]
     Active Substance: PREGABALIN
     Dosage: 1 DF, QHS (150 MG) FOR 90 DAYS
     Route: 048
  59. LYRICA [Concomitant]
     Active Substance: PREGABALIN
     Dosage: 1-2 DF, QHS (50 MG) FOR 30 DAYS
     Route: 048
  60. LYRICA [Concomitant]
     Active Substance: PREGABALIN
     Dosage: 1 DF, QHS (150 MG, 90 DAYS, 1 REFILL)
     Route: 048
     Dates: start: 20141222
  61. NEXIUM 1-2-3 [Concomitant]
     Active Substance: AMOXICILLIN\CLARITHROMYCIN\ESOMEPRAZOLE
     Indication: PRODUCT USED FOR UNKNOWN INDICATION
     Dosage: 1 DF, QD
     Route: 048
  62. PREDNISONE. [Concomitant]
     Active Substance: PREDNISONE
     Indication: POLYMYALGIA RHEUMATICA
     Dosage: 5 MG, QD (FORM ABOUT 10 YEARS)
     Route: 048
  63. PREDNISONE. [Concomitant]
     Active Substance: PREDNISONE
     Dosage: 2.5 MG, QD (30 DAYS, 1 TABLET)
     Route: 048
  64. PREDNISONE. [Concomitant]
     Active Substance: PREDNISONE
     Dosage: 2.5 MG, QD (30 DAYS, 1 TABLET)
     Route: 048
  65. AVARA [Concomitant]
     Dosage: 1 DF, QD (10 MG, 30 DAYS)
     Route: 048
  66. ULTRAM [Concomitant]
     Active Substance: TRAMADOL HYDROCHLORIDE
     Dosage: 1 DF, TID (PRN, 90 DAYS)
     Route: 048
  67. LYRICA [Concomitant]
     Active Substance: PREGABALIN
     Dosage: 1 DF, QHS (100 MG) FOR 90 DAYS
     Route: 048
  68. LYRICA [Concomitant]
     Active Substance: PREGABALIN
     Dosage: 1 DF, QHS (50 MG) FOR 90 DAYS
     Route: 048
  69. TRIAMTERENE AND HYDROCHLOROTHIAZIDE [Concomitant]
     Active Substance: HYDROCHLOROTHIAZIDE\TRIAMTERENE
     Indication: PRODUCT USED FOR UNKNOWN INDICATION
     Dosage: 1 DF, QD (75 MG-50 MG)
     Route: 048
  70. TRIAMTERENE AND HYDROCHLOROTHIAZIDE [Concomitant]
     Active Substance: HYDROCHLOROTHIAZIDE\TRIAMTERENE
     Dosage: 1 DF, (75 MG-50 MG) EVERY OTHER DAY
     Route: 048
  71. AVARA [Concomitant]
     Dosage: 1 DF, QD (10 MG, 90 DAYS)
     Route: 048
  72. AVARA [Concomitant]
     Dosage: 1 DF, QD (10 MG, 90 DAYS)
     Route: 048
  73. AVARA [Concomitant]
     Dosage: 1 DF, QD (10 MG, 90 DAYS)
     Route: 048
  74. AVARA [Concomitant]
     Dosage: 1 DF, QD (10 MG, 30 DAYS)
     Route: 048
  75. AVARA [Concomitant]
     Dosage: 1 DF, QD (10 MG, 30 DAYS)
     Route: 048
  76. AVARA [Concomitant]
     Dosage: 1 DF, QD (10 MG, 30 DAYS)
     Route: 048
  77. AVARA [Concomitant]
     Dosage: 1 DF, QD(10 MG, 2 REFILLS)
     Route: 048
     Dates: start: 20141222

REACTIONS (18)
  - Joint range of motion decreased [Unknown]
  - Foot deformity [Unknown]
  - Depression [Unknown]
  - Hypertension [Unknown]
  - Scapula fracture [Unknown]
  - Inguinal hernia [Unknown]
  - Varicose vein [Unknown]
  - Spinal osteoarthritis [Unknown]
  - Osteoporosis [Unknown]
  - Vitamin D deficiency [Unknown]
  - Oedema peripheral [Unknown]
  - Pain [Unknown]
  - Blood pressure abnormal [Unknown]
  - Gastrooesophageal reflux disease [Unknown]
  - Insomnia [Unknown]
  - Arthralgia [Unknown]
  - Fatigue [Unknown]
  - Atrial fibrillation [Unknown]
